FAERS Safety Report 17421002 (Version 1)
Quarter: 2020Q1

REPORT INFORMATION
  Report Type: Spontaneous
  Country: US (occurrence: US)
  Receive Date: 20200214
  Receipt Date: 20200214
  Transmission Date: 20200409
  Serious: Yes (Other)
  Sender: FDA-Public Use
  Company Number: US-ELI_LILLY_AND_COMPANY-US202002001529

PATIENT
  Age: 23 Year

DRUGS (2)
  1. CYMBALTA [Suspect]
     Active Substance: DULOXETINE HYDROCHLORIDE
     Indication: DEPRESSION
     Dosage: UNK, UNKNOWN
     Route: 065
  2. CYMBALTA [Suspect]
     Active Substance: DULOXETINE HYDROCHLORIDE
     Indication: ANXIETY

REACTIONS (7)
  - Haematemesis [Unknown]
  - Decreased appetite [Unknown]
  - Malaise [Unknown]
  - Cerebrovascular accident [Unknown]
  - Drug withdrawal syndrome [Unknown]
  - Asthenia [Unknown]
  - Pain [Unknown]
